FAERS Safety Report 9852611 (Version 1)
Quarter: 2014Q1

REPORT INFORMATION
  Report Type: Spontaneous
  Country: US (occurrence: US)
  Receive Date: 20140129
  Receipt Date: 20140129
  Transmission Date: 20141002
  Serious: No
  Sender: FDA-Public Use
  Company Number: US-GLAXOSMITHKLINE-A1032217A

PATIENT
  Age: 7 Year
  Sex: Male

DRUGS (2)
  1. MEPRON [Suspect]
     Indication: LYME DISEASE
     Dosage: 5ML TWICE PER DAY
     Route: 048
     Dates: start: 20130709
  2. OTHER MEDICATIONS [Concomitant]

REACTIONS (1)
  - Off label use [Not Recovered/Not Resolved]
